FAERS Safety Report 8378342-7 (Version None)
Quarter: 2012Q2

REPORT INFORMATION
  Report Type: 
  Country: None (occurrence: None)
  Receive Date: 20120521
  Receipt Date: 20120504
  Transmission Date: 20120825
  Serious: Yes (Death, Other)
  Sender: FDA-Public Use
  Company Number: 2012P1025676

PATIENT
  Age: 80 Year
  Sex: Male

DRUGS (7)
  1. METHYLPREDNISOLONE [Suspect]
     Dosage: 60 MG; IV;
     Route: 042
     Dates: start: 20120209, end: 20120209
  2. PREDNISONE [Suspect]
     Indication: PREMEDICATION
     Dosage: 5 MG; IV
     Route: 042
     Dates: start: 20120209, end: 20120209
  3. DEXCHLOPHENIRAMINE MALEATE [Suspect]
     Indication: PREMEDICATION
     Dosage: 5 MG; IV;
     Route: 042
     Dates: start: 20120209, end: 20120209
  4. RANITIDINE HCL [Suspect]
     Indication: PREMEDICATION
     Dosage: 50 MG;X1;IV
     Route: 042
     Dates: start: 20120209, end: 20120209
  5. JEVTANA KIT [Suspect]
     Indication: PROSTATE CANCER METASTATIC
     Dosage: IV, 35; IV
     Route: 042
     Dates: start: 20120119, end: 20120119
  6. JEVTANA KIT [Suspect]
     Indication: PROSTATE CANCER METASTATIC
     Dosage: IV, 35; IV
     Route: 042
     Dates: start: 20120209, end: 20120209
  7. BLOOD PRODUCTS [Concomitant]

REACTIONS (6)
  - THROMBOCYTOPENIA [None]
  - ANAEMIA [None]
  - FEBRILE BONE MARROW APLASIA [None]
  - BACTERIAL SEPSIS [None]
  - DECREASED APPETITE [None]
  - ASTHENIA [None]
